FAERS Safety Report 12616582 (Version 1)
Quarter: 2016Q3

REPORT INFORMATION
  Report Type: Spontaneous
  Country: US (occurrence: US)
  Receive Date: 20160802
  Receipt Date: 20160802
  Transmission Date: 20161109
  Serious: No
  Sender: FDA-Public Use
  Company Number: US-IMPAX LABORATORIES, INC-2015-IPXL-01260

PATIENT
  Age: 38 Year
  Sex: Male
  Weight: 113.38 kg

DRUGS (2)
  1. ALBENZA [Suspect]
     Active Substance: ALBENDAZOLE
     Indication: ABDOMINAL INFECTION
     Dosage: UNK, 2 /DAY
     Route: 048
     Dates: start: 201509, end: 2015
  2. ALBENZA [Suspect]
     Active Substance: ALBENDAZOLE
     Indication: LYME DISEASE
     Dosage: UNK, 2 /DAY
     Route: 048
     Dates: start: 201510

REACTIONS (5)
  - Off label use [Unknown]
  - Hepatic enzyme increased [Recovered/Resolved]
  - Therapeutic response unexpected [Unknown]
  - Headache [Not Recovered/Not Resolved]
  - Abnormal loss of weight [Unknown]

NARRATIVE: CASE EVENT DATE: 201509
